FAERS Safety Report 9626541 (Version 3)
Quarter: 2013Q4

REPORT INFORMATION
  Report Type: Spontaneous
  Country: BR (occurrence: BR)
  Receive Date: 20131016
  Receipt Date: 20131022
  Transmission Date: 20140711
  Serious: Yes (Other)
  Sender: FDA-Public Use
  Company Number: BR-AMGEN-BRASP2013063633

PATIENT
  Age: 67 Year
  Sex: Female
  Weight: 85 kg

DRUGS (4)
  1. ENBREL [Suspect]
     Indication: RHEUMATOID ARTHRITIS
     Dosage: 50 MG, ONCE WEEKLY
     Route: 058
     Dates: start: 201304
  2. LOSARTAN [Concomitant]
     Dosage: 1 TABLET OF STRENGH 50 MG, 2X/DAY
     Route: 048
  3. COMBIRON [Concomitant]
     Dosage: 1 TABLET OF STRENGTH 100 MG, 1X/DAY
     Route: 048
  4. NAPROSYN                           /00256201/ [Concomitant]
     Dosage: 1 TABLET OF STRENGTH 500 MG TWICE A DAY
     Route: 048

REACTIONS (2)
  - Toothache [Unknown]
  - Tooth infection [Recovering/Resolving]
